FAERS Safety Report 6614065-X (Version None)
Quarter: 2010Q1

REPORT INFORMATION
  Report Type: 
  Country: None (occurrence: None)
  Receive Date: 20100304
  Receipt Date: 20100302
  Transmission Date: 20100710
  Serious: Yes (Other)
  Sender: FDA-Public Use
  Company Number: PHEH2008US01033

PATIENT
  Sex: Male

DRUGS (6)
  1. ELIDEL [Suspect]
     Route: 061
     Dates: start: 20040101
  2. NEUPOGEN [Concomitant]
     Dosage: 480 MCG, UNK
  3. PROCRIT                            /00909301/ [Concomitant]
     Dosage: 40000 U, UNK
  4. ZOFRAN [Concomitant]
     Dosage: 8 MG, PRN
     Route: 048
  5. TRIAMCINOLONE [Concomitant]
     Dosage: 0.1 %, UNK
     Route: 061
  6. CLOTRIMAZOLE [Concomitant]
     Dosage: 1 %, UNK
     Route: 061

REACTIONS (2)
  - HODGKIN'S DISEASE [None]
  - INJURY [None]
